FAERS Safety Report 6740531-2 (Version None)
Quarter: 2010Q2

REPORT INFORMATION
  Report Type: 
  Country: None (occurrence: None)
  Receive Date: 20100525
  Receipt Date: 20100518
  Transmission Date: 20101027
  Serious: Yes (Other)
  Sender: FDA-Public Use
  Company Number: US-ROCHE-700482

PATIENT
  Sex: Female

DRUGS (4)
  1. PEGINTERFERON ALFA-2A [Suspect]
     Indication: HEPATITIS C
     Dosage: FORM: PFS
     Route: 065
     Dates: start: 20100312, end: 20100405
  2. PEGINTERFERON ALFA-2A [Suspect]
     Dosage: FORM: PRE-FILLED SYRINGE. THERAPY RESTARTED.
     Route: 065
     Dates: start: 20100422
  3. RIBASPHERE [Suspect]
     Indication: HEPATITIS C
     Route: 065
     Dates: start: 20100312, end: 20100405
  4. RIBASPHERE [Suspect]
     Dosage: IN DIVIDED DOSES
     Route: 065
     Dates: start: 20100422

REACTIONS (7)
  - CHOLECYSTITIS [None]
  - DIARRHOEA [None]
  - FATIGUE [None]
  - INFLUENZA LIKE ILLNESS [None]
  - PARANASAL SINUS HYPERSECRETION [None]
  - PLATELET COUNT DECREASED [None]
  - UPPER RESPIRATORY TRACT CONGESTION [None]
